FAERS Safety Report 4712230-X (Version None)
Quarter: 2005Q3

REPORT INFORMATION
  Report Type: 
  Country: None (occurrence: None)
  Receive Date: 20050711
  Receipt Date: 20050629
  Transmission Date: 20060218
  Serious: Yes (Hospitalization)
  Sender: FDA-Public Use
  Company Number: 2005093649

PATIENT
  Age: 2 Year
  Sex: Male
  Weight: 10.8863 kg

DRUGS (1)
  1. BENADRYL [Suspect]
     Indication: ACCIDENTAL OVERDOSE
     Dosage: 20-24 TABLETS ONCE, ORAL
     Route: 048
     Dates: start: 20050608, end: 20050608

REACTIONS (2)
  - ACCIDENTAL OVERDOSE [None]
  - VOMITING [None]
